FAERS Safety Report 13931556 (Version 1)
Quarter: 2017Q3

REPORT INFORMATION
  Report Type: Spontaneous
  Country: DE (occurrence: DE)
  Receive Date: 20170904
  Receipt Date: 20170904
  Transmission Date: 20171127
  Serious: Yes (Disabling, Congenital Anomaly, Other)
  Sender: FDA-Public Use
  Company Number: DE-TORRENT-00007018

PATIENT
  Sex: Male

DRUGS (4)
  1. ESCITALOPRAM [Suspect]
     Active Substance: ESCITALOPRAM OXALATE
  2. LORATADINE. [Concomitant]
     Active Substance: LORATADINE
  3. GRIPPEIMPFSTOFF [Concomitant]
     Active Substance: INFLUENZA VIRUS VACCINE
  4. FOLIO FORTE [Concomitant]
     Active Substance: FOLIC ACID\VITAMINS

REACTIONS (5)
  - Foetal exposure during pregnancy [Unknown]
  - Cardiomegaly [Not Recovered/Not Resolved]
  - Dextrocardia [Not Recovered/Not Resolved]
  - Encephalocele [Not Recovered/Not Resolved]
  - Small for dates baby [Unknown]
